FAERS Safety Report 9478332 (Version 1)
Quarter: 2013Q3

REPORT INFORMATION
  Report Type: Report from Study
  Country: US (occurrence: US)
  Receive Date: 20130827
  Receipt Date: 20130827
  Transmission Date: 20140515
  Serious: Yes (Other)
  Sender: FDA-Public Use
  Company Number: US-JNJFOC-20130811897

PATIENT
  Age: 49 Year
  Sex: Female
  Weight: 80.29 kg

DRUGS (8)
  1. REMICADE [Suspect]
     Indication: UVEITIS
     Route: 042
     Dates: start: 201306, end: 201306
  2. REMICADE [Suspect]
     Indication: ANKYLOSING SPONDYLITIS
     Route: 042
     Dates: start: 201306, end: 201306
  3. REMICADE [Suspect]
     Indication: RHEUMATOID ARTHRITIS
     Route: 042
     Dates: start: 201306, end: 201306
  4. PRED FORTE [Concomitant]
     Indication: UVEITIS
     Dosage: STARTED SINCE 5 YEARS
     Route: 031
  5. ADVAIR [Concomitant]
     Indication: ASTHMA
     Dosage: FROM 5-6 YEARS (DOSAGE 250/50)
     Route: 048
  6. ALBUTEROL [Concomitant]
     Indication: ASTHMA
     Dosage: FROM 5-6 YEARS
     Route: 048
  7. IBUPROFEN [Concomitant]
     Indication: SWELLING
     Route: 048
     Dates: start: 2007
  8. IBUPROFEN [Concomitant]
     Indication: PAIN
     Route: 048
     Dates: start: 2007

REACTIONS (5)
  - Hypotension [Unknown]
  - Infusion related reaction [Unknown]
  - Presyncope [Unknown]
  - Dizziness [Unknown]
  - Off label use [Unknown]
